FAERS Safety Report 6946204-5 (Version None)
Quarter: 2010Q3

REPORT INFORMATION
  Report Type: 
  Country: None (occurrence: None)
  Receive Date: 20100823
  Receipt Date: 20100817
  Transmission Date: 20110219
  Serious: Yes (Other)
  Sender: FDA-Public Use
  Company Number: 2010SP044527

PATIENT
  Sex: Female
  Weight: 53.6152 kg

DRUGS (1)
  1. IMPLANON [Suspect]
     Indication: PRODUCT USED FOR UNKNOWN INDICATION
     Dates: start: 20090317, end: 20100817

REACTIONS (3)
  - FATIGUE [None]
  - NAUSEA [None]
  - SUPRAVENTRICULAR TACHYCARDIA [None]
